FAERS Safety Report 5649370-7 (Version None)
Quarter: 2008Q1

REPORT INFORMATION
  Report Type: 
  Country: None (occurrence: None)
  Receive Date: 20080304
  Receipt Date: 20080114
  Transmission Date: 20080703
  Serious: No
  Sender: FDA-Public Use
  Company Number: US-BAYER-200811354NA

PATIENT
  Age: 56 Year
  Sex: Male
  Weight: 73 kg

DRUGS (4)
  1. ULTRAVIST 300 [Suspect]
     Indication: COMPUTERISED TOMOGRAM
     Dosage: UNIT DOSE: 100 ML
     Route: 042
     Dates: start: 20080114, end: 20080114
  2. PREDNISONE TAB [Concomitant]
     Indication: PREMEDICATION
     Dosage: UNIT DOSE: 50 MG
     Route: 065
     Dates: start: 20080113, end: 20080113
  3. BENADRYL [Concomitant]
     Indication: PREMEDICATION
     Dosage: UNIT DOSE: 50 MG
     Route: 065
     Dates: start: 20080113
  4. READI CAT 2 [Concomitant]
     Indication: COMPUTERISED TOMOGRAM
     Route: 048
     Dates: start: 20080114, end: 20080114

REACTIONS (1)
  - URTICARIA [None]
